FAERS Safety Report 21911000 (Version 1)
Quarter: 2023Q1

REPORT INFORMATION
  Report Type: Spontaneous
  Country: US (occurrence: US)
  Receive Date: 20230125
  Receipt Date: 20230125
  Transmission Date: 20230417
  Serious: No
  Sender: FDA-Public Use
  Company Number: US-ALLERGAN-2208349US

PATIENT
  Sex: Female

DRUGS (1)
  1. BOTOX [Suspect]
     Active Substance: ONABOTULINUMTOXINA
     Indication: Product used for unknown indication
     Dosage: UNK UNK, SINGLE

REACTIONS (8)
  - Spinal deformity [Unknown]
  - Condition aggravated [Unknown]
  - Posture abnormal [Unknown]
  - Pain in jaw [Unknown]
  - Muscle spasms [Unknown]
  - Muscular weakness [Unknown]
  - Atrophy [Unknown]
  - Asthenia [Recovering/Resolving]
